FAERS Safety Report 8623088-0 (Version None)
Quarter: 2012Q3

REPORT INFORMATION
  Report Type: 
  Country: None (occurrence: None)
  Receive Date: 20120827
  Receipt Date: 20120821
  Transmission Date: 20120928
  Serious: Yes (Death, Other)
  Sender: FDA-Public Use
  Company Number: HR-JNJFOC-20120811425

PATIENT
  Age: 57 Year
  Sex: Female

DRUGS (6)
  1. DOXORUBICIN HYDROCHLORIDE [Suspect]
     Indication: BREAST CANCER
     Dosage: 6 CYCLES
     Route: 042
  2. CAPECITABINE [Suspect]
     Indication: BREAST CANCER
     Route: 048
  3. CISPLATIN [Suspect]
     Indication: BREAST CANCER
     Dosage: 6 CYCLES
     Route: 065
  4. GEMCITABINE HYDROCHLORIDE [Suspect]
     Indication: BREAST CANCER
     Route: 065
  5. PACLITAXEL [Suspect]
     Indication: BREAST CANCER
     Route: 065
  6. CYCLOPHOSPHAMIDE [Suspect]
     Indication: BREAST CANCER
     Dosage: 6 CYCLES
     Route: 065

REACTIONS (3)
  - PULMONARY EMBOLISM [None]
  - BREAST CANCER METASTATIC [None]
  - PARANEOPLASTIC DERMATOMYOSITIS [None]
